FAERS Safety Report 21259308 (Version 2)
Quarter: 2022Q4

REPORT INFORMATION
  Report Type: Spontaneous
  Country: US (occurrence: US)
  Receive Date: 20220826
  Receipt Date: 20221021
  Transmission Date: 20230112
  Serious: No
  Sender: FDA-Public Use
  Company Number: US-PFIZER INC-202201094609

PATIENT
  Age: 65 Year
  Sex: Male
  Weight: 75.283 kg

DRUGS (6)
  1. PAXLOVID [Suspect]
     Active Substance: NIRMATRELVIR\RITONAVIR
     Indication: COVID-19 treatment
     Dosage: 10 MG, 2X/DAY
     Dates: start: 20220814, end: 20220818
  2. PROPRANOLOL [Concomitant]
     Active Substance: PROPRANOLOL HYDROCHLORIDE
     Dosage: UNK
  3. AMOXICILLIN\CLARITHROMYCIN\ESOMEPRAZOLE [Concomitant]
     Active Substance: AMOXICILLIN\CLARITHROMYCIN\ESOMEPRAZOLE
     Dosage: UNK
  4. ASPIRIN [Concomitant]
     Active Substance: ASPIRIN
     Dosage: UNK
     Dates: start: 20220814, end: 20220818
  5. ASPIRIN [Concomitant]
     Active Substance: ASPIRIN
     Dosage: UNK
     Dates: start: 20220820, end: 20220826
  6. BENZALKONIUM CHLORIDE\SODIUM CHLORIDE [Concomitant]
     Active Substance: BENZALKONIUM CHLORIDE\SODIUM CHLORIDE
     Dosage: UNK
     Dates: start: 20220820

REACTIONS (3)
  - COVID-19 [Recovered/Resolved]
  - Disease recurrence [Recovered/Resolved]
  - Incorrect dose administered [Unknown]

NARRATIVE: CASE EVENT DATE: 20220814
